FAERS Safety Report 4731967-X (Version None)
Quarter: 2005Q3

REPORT INFORMATION
  Report Type: 
  Country: None (occurrence: None)
  Receive Date: 20050725
  Receipt Date: 20041104
  Transmission Date: 20060218
  Serious: Yes (Other)
  Sender: FDA-Public Use
  Company Number: WAES 0411USA00732

PATIENT
  Age: 82 Year
  Sex: Female

DRUGS (2)
  1. VIOXX [Suspect]
     Indication: ARTHRITIS
     Dosage: 25 MG/DAILY/PO
     Route: 048
  2. (THERAPY UNSPECIFIED) [Concomitant]

REACTIONS (1)
  - HYPERTENSIVE CRISIS [None]
